FAERS Safety Report 9880687 (Version 1)
Quarter: 2014Q1

REPORT INFORMATION
  Report Type: Spontaneous
  Country: CH (occurrence: None)
  Receive Date: 20140205
  Receipt Date: 20140205
  Transmission Date: 20141002
  Serious: Yes (Hospitalization)
  Sender: FDA-Public Use
  Company Number: 2013000301

PATIENT
  Age: 94 Year
  Sex: Female
  Weight: 43.8 kg

DRUGS (3)
  1. ACEON [Suspect]
     Indication: CARDIOMYOPATHY
     Route: 048
     Dates: start: 20130826, end: 20130923
  2. PLAVIX [Suspect]
     Indication: CARDIOMYOPATHY
     Dates: start: 2008
  3. MONURIL [Suspect]
     Indication: URINARY TRACT INFECTION
     Route: 048
     Dates: start: 20130913, end: 20130913

REACTIONS (8)
  - Pruritus [None]
  - Neutropenia [None]
  - Urinary tract infection [None]
  - Eosinophil count increased [None]
  - Hypersensitivity [None]
  - Agranulocytosis [None]
  - White blood cell count decreased [None]
  - Marrow hyperplasia [None]
